FAERS Safety Report 9177345 (Version 1)
Quarter: 2013Q1

REPORT INFORMATION
  Report Type: Spontaneous
  Country: IT (occurrence: IT)
  Receive Date: 20130321
  Receipt Date: 20130321
  Transmission Date: 20140127
  Serious: Yes (Other)
  Sender: FDA-Public Use
  Company Number: IT-TEVA-391707ISR

PATIENT
  Age: 37 Year
  Sex: Male
  Weight: 65 kg

DRUGS (4)
  1. BLEOMYCIN [Suspect]
     Indication: HODGKIN^S DISEASE
     Dosage: 20 MILLIGRAM DAILY;
     Route: 042
     Dates: start: 20120716, end: 20130103
  2. VINBLASTINE [Suspect]
     Indication: HODGKIN^S DISEASE
     Dosage: 10 MILLIGRAM DAILY;
     Route: 041
     Dates: start: 20120716, end: 20130103
  3. DOXORUBICIN [Suspect]
     Indication: HODGKIN^S DISEASE
     Dosage: 60 MILLIGRAM DAILY;
     Route: 042
     Dates: start: 20120716, end: 20130103
  4. DETICENE [Suspect]
     Indication: HODGKIN^S DISEASE
     Dosage: 600 MILLIGRAM DAILY;
     Route: 042
     Dates: start: 20120716, end: 20130103

REACTIONS (1)
  - Anaemia [Recovering/Resolving]
